FAERS Safety Report 6379863-9 (Version None)
Quarter: 2009Q3

REPORT INFORMATION
  Report Type: 
  Country: None (occurrence: None)
  Receive Date: 20090928
  Receipt Date: 20090917
  Transmission Date: 20100115
  Serious: No
  Sender: FDA-Public Use
  Company Number: US-B.I. PHARMACEUTICALS,INC./RIDGEFIELD-2009-BP-10997BP

PATIENT
  Age: 74 Year
  Sex: Female

DRUGS (3)
  1. SPIRIVA [Suspect]
     Indication: CHRONIC OBSTRUCTIVE PULMONARY DISEASE
     Dosage: 18 MCG
     Route: 055
     Dates: start: 20060101, end: 20060101
  2. SPIRIVA [Suspect]
     Indication: ASTHMA
  3. MYLANTA [Concomitant]
     Indication: BARRETT'S OESOPHAGUS

REACTIONS (3)
  - MICTURITION URGENCY [None]
  - PERIPHERAL COLDNESS [None]
  - SKIN DISCOLOURATION [None]
